FAERS Safety Report 8159245-X (Version None)
Quarter: 2012Q1

REPORT INFORMATION
  Report Type: 
  Country: None (occurrence: None)
  Receive Date: 20120217
  Receipt Date: 20120207
  Transmission Date: 20120608
  Serious: Yes (Hospitalization, Other)
  Sender: FDA-Public Use
  Company Number: ADR-2011-10029

PATIENT
  Age: 69 Year
  Sex: Male
  Weight: 49 kg

DRUGS (6)
  1. PURSENNID [Concomitant]
  2. LEVOFLOXACIN [Concomitant]
  3. LIORESAL [Concomitant]
  4. BACLOFEN [Suspect]
     Indication: MUSCLE SPASTICITY
     Dosage: 50 MCG/DAY
     Dates: start: 20110106
  5. RISUMIC [Concomitant]
  6. MAGMITT [Concomitant]

REACTIONS (9)
  - BLOOD PRESSURE DECREASED [None]
  - OXYGEN SATURATION DECREASED [None]
  - ANAESTHETIC COMPLICATION [None]
  - SPUTUM RETENTION [None]
  - PNEUMONIA ASPIRATION [None]
  - PYREXIA [None]
  - ATELECTASIS [None]
  - HEART RATE INCREASED [None]
  - POSTOPERATIVE WOUND INFECTION [None]
